FAERS Safety Report 19635995 (Version 2)
Quarter: 2021Q3

REPORT INFORMATION
  Report Type: Spontaneous
  Country: JP (occurrence: JP)
  Receive Date: 20210730
  Receipt Date: 20210810
  Transmission Date: 20211014
  Serious: Yes (Other)
  Sender: FDA-Public Use
  Company Number: JP-ORGANON-O2107JPN000416J

PATIENT
  Age: 87 Year
  Sex: Female

DRUGS (7)
  1. DESALEX TABLETS 5MG [Suspect]
     Active Substance: DESLORATADINE
     Dosage: 5 MILLIGRAM, QD
     Route: 048
     Dates: start: 202102, end: 202106
  2. MOSAPRIDE CITRATE [Concomitant]
     Active Substance: MOSAPRIDE CITRATE
     Dosage: UNK
     Route: 048
  3. NIFEDIPINE. [Concomitant]
     Active Substance: NIFEDIPINE
     Dosage: UNK
     Route: 048
  4. METHYCOBAL [Concomitant]
     Active Substance: METHYLCOBALAMIN
     Dosage: UNK
     Route: 048
  5. RABEPRAZOLE NA [Concomitant]
     Active Substance: RABEPRAZOLE SODIUM
     Dosage: UNK
     Route: 048
  6. ALOSENN [SENNOSIDE A+B] [Concomitant]
     Dosage: UNK
     Route: 048
  7. TOKISHAKUYAKUSAN [ALISMA ORIENTALE TUBER;ANGELICA ACUTILOBA ROOT;ATRAC [Concomitant]
     Dosage: UNK
     Route: 048

REACTIONS (1)
  - Delirium [Unknown]

NARRATIVE: CASE EVENT DATE: 202107
